FAERS Safety Report 7679990-X (Version None)
Quarter: 2011Q3

REPORT INFORMATION
  Report Type: 
  Country: None (occurrence: None)
  Receive Date: 20110812
  Receipt Date: 20110801
  Transmission Date: 20111222
  Serious: Yes (Hospitalization)
  Sender: FDA-Public Use
  Company Number: US-JNJFOC-20090801157

PATIENT
  Sex: Male
  Weight: 43.9 kg

DRUGS (8)
  1. REMICADE [Suspect]
     Route: 042
     Dates: start: 20090701
  2. PREDNISONE [Concomitant]
  3. PREVACID [Concomitant]
  4. REMICADE [Suspect]
     Indication: CROHN'S DISEASE
     Dosage: 2ND DOSE
     Route: 042
     Dates: start: 20090630
  5. MERCAPTOPURINE [Concomitant]
  6. TRIMETHOPRIM + SULFAMETHOXAZOLE [Concomitant]
     Dosage: SATURDAY AND SUNDAY ONLY
  7. REMICADE [Suspect]
     Dosage: TOTAL 8 DOSES
     Route: 042
     Dates: start: 20100226
  8. REMICADE [Suspect]
     Route: 042
     Dates: start: 20090617

REACTIONS (1)
  - CROHN'S DISEASE [None]
